FAERS Safety Report 23594314 (Version 2)
Quarter: 2024Q1

REPORT INFORMATION
  Report Type: Spontaneous
  Country: EG (occurrence: EG)
  Receive Date: 20240305
  Receipt Date: 20240307
  Transmission Date: 20240409
  Serious: Yes (Other)
  Sender: FDA-Public Use
  Company Number: EG-SUN PHARMACEUTICAL INDUSTRIES LTD-2024R1-434225

PATIENT
  Age: 59 Year
  Sex: Female

DRUGS (2)
  1. CLOZAPINE [Suspect]
     Active Substance: CLOZAPINE
     Indication: Antidepressant therapy
     Dosage: 75 MG QAM AND 125 MG QHS
     Route: 065
  2. LITHIUM [Suspect]
     Active Substance: LITHIUM
     Indication: Antidepressant therapy
     Dosage: 450 MG QHS
     Route: 065

REACTIONS (1)
  - Myoclonus [Recovered/Resolved]
